FAERS Safety Report 9762603 (Version 1)
Quarter: 2013Q4

REPORT INFORMATION
  Report Type: Spontaneous
  Country: US (occurrence: US)
  Receive Date: 20131216
  Receipt Date: 20131216
  Transmission Date: 20140711
  Serious: Yes (Hospitalization, Other)
  Sender: FDA-Public Use
  Company Number: US-MERCK-1312USA004367

PATIENT
  Sex: Female

DRUGS (2)
  1. PEGINTRON [Suspect]
     Indication: HEPATITIS C
     Dosage: UNK
     Dates: start: 20130426
  2. REBETOL [Suspect]
     Indication: HEPATITIS C
     Dosage: UNK
     Route: 048
     Dates: start: 20130427

REACTIONS (12)
  - Hypertension [Unknown]
  - Skin ulcer [Unknown]
  - Abdominal distension [Unknown]
  - Oedema peripheral [Unknown]
  - Skin disorder [Unknown]
  - Contusion [Unknown]
  - Haemorrhage [Unknown]
  - Dry skin [Unknown]
  - Headache [Unknown]
  - Migraine [Unknown]
  - Injection site reaction [Unknown]
  - Skin exfoliation [Unknown]
